FAERS Safety Report 24693507 (Version 1)
Quarter: 2024Q4

REPORT INFORMATION
  Report Type: Report from Study
  Country: BE (occurrence: BE)
  Receive Date: 20241203
  Receipt Date: 20241203
  Transmission Date: 20250114
  Serious: Yes (Hospitalization)
  Sender: ABBVIE
  Company Number: BE-ABBVIE-6024747

PATIENT
  Age: 77 Year
  Sex: Female

DRUGS (7)
  1. CARBIDOPA\LEVODOPA [Suspect]
     Active Substance: CARBIDOPA\LEVODOPA
     Indication: Parkinson^s disease
     Route: 050
     Dates: start: 20231205
  2. CARBIDOPA\LEVODOPA [Suspect]
     Active Substance: CARBIDOPA\LEVODOPA
     Dosage: DAY PUMP, MORNING DOSE-7.0ML, ADDITIONAL TUBE FILING-3.0ML, CONTINUOUS DOSAGE-3.0ML/H, EXTRA DOSA...
     Route: 050
     Dates: start: 20240318, end: 20240322
  3. CARBIDOPA\LEVODOPA [Suspect]
     Active Substance: CARBIDOPA\LEVODOPA
     Dosage: DAY PUMP, MORNING DOSE-7.0ML, ADDITIONAL TUBE FILING-3.0ML, CONTINUOUS DOSAGE-3.3ML/H, EXTRA DOSA...
     Route: 050
     Dates: start: 20240322, end: 20240607
  4. CARBIDOPA\LEVODOPA [Suspect]
     Active Substance: CARBIDOPA\LEVODOPA
     Dosage: DAY PUMP, MORNING DOSE-4.0ML, ADDITIONAL TUBE FILING-3.0ML, CONTINUOUS DOSAGE-3.7ML/H, EXTRA DOSA...
     Route: 050
     Dates: start: 20240607, end: 20240607
  5. CARBIDOPA\LEVODOPA [Suspect]
     Active Substance: CARBIDOPA\LEVODOPA
     Dosage: SPARE PUMP, MORNING DOSE-4.0ML, ADDITIONAL TUBE FILING-3.0ML, CONTINUOUS DOSAGE-3.7ML/H, EXTRA DO...
     Route: 050
     Dates: start: 20240607, end: 20240820
  6. CARBIDOPA\LEVODOPA [Suspect]
     Active Substance: CARBIDOPA\LEVODOPA
     Dosage: DAY PUMP, MORNING DOSE-4.0ML, ADDITIONAL TUBE FILING-3.0ML, CONTINUOUS DOSAGE-3.7ML/H, EXTRA DOSA...
     Route: 050
     Dates: start: 20240820, end: 20240820
  7. CARBIDOPA\LEVODOPA [Suspect]
     Active Substance: CARBIDOPA\LEVODOPA
     Dosage: SPARE PUMP, MORNING DOSE-4.0ML, ADDITIONAL TUBE FILING-3.0ML, CONTINUOUS DOSAGE-3.7ML/H, EXTRA DO...
     Route: 050
     Dates: start: 202408

REACTIONS (1)
  - Pleural effusion [Unknown]

NARRATIVE: CASE EVENT DATE: 20240101
